FAERS Safety Report 5518495-9 (Version None)
Quarter: 2007Q4

REPORT INFORMATION
  Report Type: 
  Country: None (occurrence: None)
  Receive Date: 20071115
  Receipt Date: 20071108
  Transmission Date: 20080405
  Serious: Yes (Hospitalization, Other)
  Sender: FDA-Public Use
  Company Number: US-ASTRAZENECA-2006UW17478

PATIENT
  Age: 37 Year
  Sex: Female
  Weight: 113.6 kg

DRUGS (4)
  1. SEROQUEL [Suspect]
     Indication: BIPOLAR DISORDER
     Dosage: 100 MG - 300 MG
     Route: 048
     Dates: start: 20000801, end: 20050225
  2. SEROQUEL [Suspect]
     Indication: INSOMNIA
     Dosage: 100 MG - 300 MG
     Route: 048
     Dates: start: 20000801, end: 20050225
  3. EFFEXOR [Concomitant]
     Dates: start: 20061001
  4. ATENOLOL [Concomitant]

REACTIONS (15)
  - ABORTION SPONTANEOUS [None]
  - ARRHYTHMIA [None]
  - BLINDNESS [None]
  - BLOOD DISORDER [None]
  - CARDIAC DISORDER [None]
  - CHOLECYSTECTOMY [None]
  - CONVULSION [None]
  - DIABETES MELLITUS [None]
  - ESSENTIAL TREMOR [None]
  - HERNIA REPAIR [None]
  - HYSTERECTOMY [None]
  - MYOCARDIAL INFARCTION [None]
  - NEUROPATHY PERIPHERAL [None]
  - THYROID DISORDER [None]
  - WEIGHT INCREASED [None]
